FAERS Safety Report 15448269 (Version 1)
Quarter: 2018Q4

REPORT INFORMATION
  Report Type: Spontaneous
  Country: MY (occurrence: MY)
  Receive Date: 20180929
  Receipt Date: 20180929
  Transmission Date: 20190204
  Serious: Yes (Other)
  Sender: FDA-Public Use
  Company Number: MY-ABBVIE-18P-101-2502261-00

PATIENT
  Sex: Female

DRUGS (1)
  1. KLACID FC [Suspect]
     Active Substance: CLARITHROMYCIN
     Indication: UPPER RESPIRATORY TRACT INFECTION
     Route: 048

REACTIONS (2)
  - Tachycardia [Unknown]
  - Palpitations [Unknown]
